FAERS Safety Report 20790463 (Version 2)
Quarter: 2022Q2

REPORT INFORMATION
  Report Type: Spontaneous
  Country: RU (occurrence: RU)
  Receive Date: 20220505
  Receipt Date: 20220510
  Transmission Date: 20220721
  Serious: Yes (Hospitalization, Other)
  Sender: FDA-Public Use
  Company Number: RU-AMGEN-RUSSP2022072618

PATIENT
  Age: 62 Year
  Sex: Male

DRUGS (10)
  1. XGEVA [Suspect]
     Active Substance: DENOSUMAB
     Indication: Bone giant cell tumour
     Dosage: 120 MILLIGRAM
     Route: 058
     Dates: start: 20210410
  2. XGEVA [Suspect]
     Active Substance: DENOSUMAB
     Indication: Metastases to bone
     Dosage: 120 MILLIGRAM, QMO
     Route: 058
  3. CINACALCET HYDROCHLORIDE [Suspect]
     Active Substance: CINACALCET HYDROCHLORIDE
     Indication: Hypercalcaemia
     Dosage: 60 MILLIGRAM, QD
     Route: 065
     Dates: start: 20210823
  4. CHOLECALCIFEROL [Concomitant]
     Active Substance: CHOLECALCIFEROL
     Dosage: 7000 UNK, QD
  5. CHOLECALCIFEROL [Concomitant]
     Active Substance: CHOLECALCIFEROL
     Dosage: 1500 UNK
  6. TAMSULOSIN [Concomitant]
     Active Substance: TAMSULOSIN
  7. VITAMIN D3 [Concomitant]
     Active Substance: CHOLECALCIFEROL
  8. ALFACALCIDOL [Concomitant]
     Active Substance: ALFACALCIDOL
  9. CALCIUM CARBONATE [Concomitant]
     Active Substance: CALCIUM CARBONATE
     Dosage: 1500 MILLIGRAM, QD
  10. CALCIUM CARBONATE [Concomitant]
     Active Substance: CALCIUM CARBONATE
     Dosage: 2000 MILLIGRAM, QD

REACTIONS (26)
  - Femur fracture [Unknown]
  - Vitamin D deficiency [Recovered/Resolved]
  - Thyroid mass [Unknown]
  - Hypercalcaemia [Recovered/Resolved]
  - Fall [Unknown]
  - Chronic kidney disease [Unknown]
  - Spinal compression fracture [Unknown]
  - Ulna fracture [Unknown]
  - Spinal fracture [Unknown]
  - Rib fracture [Unknown]
  - High turnover osteopathy [Unknown]
  - Femoral neck fracture [Unknown]
  - Dermatitis bullous [Unknown]
  - Blood creatinine increased [Not Recovered/Not Resolved]
  - Arthralgia [Unknown]
  - Therapy non-responder [Unknown]
  - Blood iron decreased [Unknown]
  - Cystic fibrosis [Unknown]
  - Thyroid adenoma [Unknown]
  - Hyperparathyroidism primary [Recovered/Resolved]
  - Gait disturbance [Unknown]
  - Anaemia [Unknown]
  - Deformity thorax [Unknown]
  - Adjusted calcium increased [Unknown]
  - Adjusted calcium decreased [Unknown]
  - Hypocalciuria [Unknown]

NARRATIVE: CASE EVENT DATE: 20210101
